FAERS Safety Report 24793587 (Version 1)
Quarter: 2024Q4

REPORT INFORMATION
  Report Type: Spontaneous
  Country: US (occurrence: US)
  Receive Date: 20241231
  Receipt Date: 20241231
  Transmission Date: 20250115
  Serious: Yes (Other)
  Sender: PFIZER
  Company Number: US-PFIZER INC-202400331338

PATIENT
  Age: 71 Year

DRUGS (1)
  1. NURTEC ODT [Suspect]
     Active Substance: RIMEGEPANT SULFATE
     Indication: Migraine
     Dosage: UNK UNK, ALTERNATE DAY
     Dates: start: 202312

REACTIONS (5)
  - Bone deformity [Not Recovered/Not Resolved]
  - Limb injury [Not Recovered/Not Resolved]
  - Haematoma [Not Recovered/Not Resolved]
  - Loss of personal independence in daily activities [Not Recovered/Not Resolved]
  - Nerve injury [Not Recovered/Not Resolved]
